FAERS Safety Report 7499340-1 (Version None)
Quarter: 2011Q2

REPORT INFORMATION
  Report Type: 
  Country: None (occurrence: None)
  Receive Date: 20110524
  Receipt Date: 20110518
  Transmission Date: 20111010
  Serious: Yes (Other)
  Sender: FDA-Public Use
  Company Number: US-ABBOTT-11P-163-0725700-00

PATIENT
  Sex: Male

DRUGS (4)
  1. GLYBURIDE [Concomitant]
     Indication: PRODUCT USED FOR UNKNOWN INDICATION
  2. PREDNISONE [Concomitant]
     Indication: RHEUMATOID ARTHRITIS
  3. LORTAB [Concomitant]
     Indication: PAIN
  4. HUMIRA [Suspect]
     Indication: RHEUMATOID ARTHRITIS
     Dates: start: 20110217

REACTIONS (4)
  - PAIN [None]
  - ARTHRALGIA [None]
  - INSOMNIA [None]
  - GLAUCOMA [None]
